FAERS Safety Report 6493282-6 (Version None)
Quarter: 2009Q4

REPORT INFORMATION
  Report Type: 
  Country: None (occurrence: None)
  Receive Date: 20091209
  Receipt Date: 20091203
  Transmission Date: 20100525
  Serious: Yes (Other)
  Sender: FDA-Public Use
  Company Number: 2009SP037222

PATIENT
  Age: 38 Year
  Sex: Female

DRUGS (6)
  1. MIRALAX [Suspect]
     Indication: COLONOSCOPY
     Dosage: PO
     Route: 048
     Dates: start: 20091116, end: 20091116
  2. ZOLOFT [Concomitant]
  3. ADVIL [Concomitant]
  4. EXCEDRIN (MIGRAINE) [Concomitant]
  5. MIGRAINE [Concomitant]
  6. INDOCINE [Concomitant]

REACTIONS (8)
  - COUGH [None]
  - DYSPHONIA [None]
  - OCULAR HYPERAEMIA [None]
  - PHARYNGEAL OEDEMA [None]
  - RASH [None]
  - SNEEZING [None]
  - SWOLLEN TONGUE [None]
  - URTICARIA [None]
